FAERS Safety Report 9153679 (Version 1)
Quarter: 2013Q1

REPORT INFORMATION
  Report Type: Spontaneous
  Country: DK (occurrence: None)
  Receive Date: 20130205
  Receipt Date: 20130205
  Transmission Date: 20140127
  Serious: Yes (Other)
  Sender: FDA-Public Use
  Company Number: 2013MA000893

PATIENT
  Age: 87 Year
  Sex: Female

DRUGS (7)
  1. METFORMIN HYDROCHLORIDE [Suspect]
     Indication: PRODUCT USED FOR UNKNOWN INDICATION
     Route: 048
     Dates: start: 20111120, end: 20121219
  2. GLIMEPIRIDE (GLIMEPIRIDE) [Suspect]
     Indication: PRODUCT USED FOR UNKNOWN INDICATION
     Route: 048
     Dates: start: 20111220, end: 20121219
  3. REPAGLINIDE (REPAGLINIDE) [Suspect]
     Indication: PRODUCT USED FOR UNKNOWN INDICATION
     Route: 048
     Dates: start: 20111220
  4. CARDIOASPIRIN [Concomitant]
  5. INIBACE [Concomitant]
  6. PERIACTIN [Concomitant]
  7. SINEMET [Concomitant]

REACTIONS (1)
  - Hypoglycaemia [None]
